FAERS Safety Report 9780604 (Version 1)
Quarter: 2013Q4

REPORT INFORMATION
  Report Type: Report from Study
  Country: US (occurrence: US)
  Receive Date: 20131224
  Receipt Date: 20131224
  Transmission Date: 20140711
  Serious: Yes (Other)
  Sender: FDA-Public Use
  Company Number: US-ROCHE-1321131

PATIENT
  Sex: Female

DRUGS (9)
  1. AVASTIN [Suspect]
     Indication: RETINAL OEDEMA
     Route: 065
     Dates: start: 20110509
  2. AVASTIN [Suspect]
     Indication: RETINAL VEIN OCCLUSION
  3. AVASTIN [Suspect]
     Indication: RETINAL VEIN OCCLUSION
  4. AVASTIN [Suspect]
     Indication: MACULAR OEDEMA
  5. LIVALO [Concomitant]
  6. CALTRATE 600 [Concomitant]
  7. XARELTO [Concomitant]
  8. LISINOPRIL [Concomitant]
  9. METOPROLOL TARTRATE [Concomitant]

REACTIONS (8)
  - Cystoid macular oedema [Unknown]
  - Vitreous floaters [Unknown]
  - Lens disorder [Unknown]
  - Vitreous detachment [Unknown]
  - Optic atrophy [Unknown]
  - Macular scar [Unknown]
  - Retinal haemorrhage [Unknown]
  - Aneurysm [Unknown]
